FAERS Safety Report 8486779-0 (Version None)
Quarter: 2012Q3

REPORT INFORMATION
  Report Type: 
  Country: None (occurrence: None)
  Receive Date: 20120704
  Receipt Date: 20120628
  Transmission Date: 20120928
  Serious: Yes (Hospitalization)
  Sender: FDA-Public Use
  Company Number: US-BIOGENIDEC-2012BI011843

PATIENT
  Age: 35 Year
  Sex: Female

DRUGS (9)
  1. TYSABRI [Suspect]
     Indication: MULTIPLE SCLEROSIS
     Route: 042
     Dates: start: 20090821, end: 20120222
  2. KLONOPIN [Concomitant]
     Indication: MUSCLE SPASMS
  3. IMITREX [Concomitant]
     Indication: HEADACHE
  4. LYRICA [Concomitant]
     Indication: PRODUCT USED FOR UNKNOWN INDICATION
  5. EXALGO [Concomitant]
     Indication: PRODUCT USED FOR UNKNOWN INDICATION
  6. KLONOPIN [Concomitant]
     Indication: PAIN
  7. LISINOPRIL [Concomitant]
     Indication: BLOOD PRESSURE
  8. AMBIEN CR [Concomitant]
     Indication: HYPERSOMNIA
  9. VESICAR [Concomitant]
     Indication: BLADDER DISORDER

REACTIONS (1)
  - CELLULITIS [None]
